FAERS Safety Report 7555543-9 (Version None)
Quarter: 2011Q2

REPORT INFORMATION
  Report Type: 
  Country: None (occurrence: None)
  Receive Date: 20110617
  Receipt Date: 20020725
  Transmission Date: 20111010
  Serious: Yes (Death)
  Sender: FDA-Public Use
  Company Number: PHHO2002GB06020

PATIENT

DRUGS (1)
  1. CARBAMAZEPINE [Suspect]
     Dates: end: 20010424

REACTIONS (4)
  - LEFT VENTRICULAR FAILURE [None]
  - ARTERIOSCLEROSIS CORONARY ARTERY [None]
  - CONCOMITANT DISEASE PROGRESSION [None]
  - MYOCARDIAL ISCHAEMIA [None]
